FAERS Safety Report 6668277-X (Version None)
Quarter: 2010Q2

REPORT INFORMATION
  Report Type: 
  Country: None (occurrence: None)
  Receive Date: 20100405
  Receipt Date: 20100405
  Transmission Date: 20101027
  Serious: No
  Sender: FDA-Public Use
  Company Number: None

PATIENT
  Age: 56 Year
  Sex: Male
  Weight: 86.1834 kg

DRUGS (1)
  1. LANSOPRAZOLE [Suspect]
     Indication: DRUG THERAPY CHANGED
     Dosage: 30 MG 1 PER DAY ORAL
     Route: 048
     Dates: start: 20100125, end: 20100301

REACTIONS (2)
  - DRUG INEFFECTIVE [None]
  - PRODUCT SUBSTITUTION ISSUE [None]
